FAERS Safety Report 4517271-3 (Version None)
Quarter: 2005Q1

REPORT INFORMATION
  Report Type: 
  Country: None (occurrence: None)
  Receive Date: 20041001
  Receipt Date: 20040728
  Transmission Date: 20050727
  Serious: Yes (Other)
  Sender: FDA-Public Use
  Company Number: PHEH2004US08176

PATIENT
  Age: 56 Year
  Sex: Male

DRUGS (2)
  1. LOPRESSOR [Suspect]
     Indication: HYPERTENSION
     Dates: start: 19800101
  2. BETA BLOCKING AGENTS(NO INGREDIENTS/SUBSTANCES) [Suspect]

REACTIONS (1)
  - DEPRESSION [None]
